FAERS Safety Report 6470548-7 (Version None)
Quarter: 2009Q4

REPORT INFORMATION
  Report Type: 
  Country: None (occurrence: None)
  Receive Date: 20091203
  Receipt Date: 20091121
  Transmission Date: 20100525
  Serious: Yes (Other)
  Sender: FDA-Public Use
  Company Number: SE-PFIZER INC-2009301126

PATIENT
  Sex: Male

DRUGS (2)
  1. ZOLOFT [Suspect]
     Indication: PANIC ATTACK
     Dosage: UNK
     Route: 048
     Dates: start: 20091001
  2. CITALOPRAM [Concomitant]
     Indication: PANIC ATTACK
     Dosage: UNK
     Route: 048
     Dates: start: 20090901

REACTIONS (7)
  - ABNORMAL DREAMS [None]
  - CRYING [None]
  - DIZZINESS [None]
  - EMOTIONAL DISORDER [None]
  - FACIAL PALSY [None]
  - FEELING ABNORMAL [None]
  - HYPERHIDROSIS [None]
